FAERS Safety Report 11149806 (Version 1)
Quarter: 2015Q2

REPORT INFORMATION
  Report Type: Report from Study
  Country: US (occurrence: US)
  Receive Date: 20150529
  Receipt Date: 20150529
  Transmission Date: 20150821
  Serious: Yes (Hospitalization)
  Sender: FDA-Public Use
  Company Number: PHEH2015US010069

PATIENT
  Sex: Female

DRUGS (1)
  1. AFINITOR [Suspect]
     Active Substance: EVEROLIMUS
     Indication: RENAL CELL CARCINOMA STAGE IV
     Dosage: 10 MG, UNK
     Route: 065

REACTIONS (4)
  - Hypoaesthesia [Unknown]
  - Oral pain [Unknown]
  - Second primary malignancy [Unknown]
  - Spinal cord neoplasm [Unknown]

NARRATIVE: CASE EVENT DATE: 201402
